FAERS Safety Report 4463135-3 (Version None)
Quarter: 2004Q3

REPORT INFORMATION
  Report Type: 
  Country: None (occurrence: None)
  Receive Date: 20040928
  Receipt Date: 20040922
  Transmission Date: 20050211
  Serious: Yes (Hospitalization)
  Sender: FDA-Public Use
  Company Number: SELE20040004

PATIENT
  Age: 71 Year
  Sex: Female

DRUGS (3)
  1. SELEGILINE HYDROCHLORIDE [Suspect]
     Indication: PARKINSON'S DISEASE
     Dosage: 2.5 MG DAILY PO
     Route: 048
  2. LEVODOPA [Suspect]
     Indication: PARKINSON'S DISEASE
     Dosage: 400 MG DAILY PO
     Route: 048
  3. CABERGOLINE [Concomitant]

REACTIONS (3)
  - AGGRESSION [None]
  - DELIRIUM [None]
  - HALLUCINATION [None]
